FAERS Safety Report 8573966 (Version 2)
Quarter: 2014Q2

REPORT INFORMATION
  Report Type: Spontaneous
  Country: US (occurrence: US)
  Receive Date: 20120522
  Receipt Date: 20140527
  Transmission Date: 20141212
  Serious: Yes (Hospitalization, Other)
  Sender: FDA-Public Use
  Company Number: US-BAYER-2012-049597

PATIENT
  Age: 22 Year
  Sex: Female
  Weight: 98 kg

DRUGS (12)
  1. YAZ [Suspect]
     Indication: CONTRACEPTION
     Dosage: UNK
     Dates: start: 201110, end: 20120112
  2. YASMIN [Suspect]
     Dosage: UNK
     Dates: start: 201110, end: 20120112
  3. OCELLA [Suspect]
     Dosage: UNK
     Dates: start: 201110, end: 20120112
  4. LYRICA [Concomitant]
     Indication: MUSCULOSKELETAL PAIN
  5. ZOLOFT [Concomitant]
     Indication: NAUSEA
  6. ZOLOFT [Concomitant]
     Indication: DEPRESSION
  7. ZOLOFT [Concomitant]
     Indication: VOMITING
  8. DILAUDID [Concomitant]
     Indication: FIBROMYALGIA
     Dosage: UNK UNK, PRN
  9. DILAUDID [Concomitant]
     Indication: NAUSEA
  10. DILAUDID [Concomitant]
     Indication: VOMITING
  11. BENTYL [Concomitant]
     Indication: CYCLIC VOMITING SYNDROME
  12. KLONOPIN [Concomitant]
     Indication: DEPRESSION

REACTIONS (8)
  - Pulmonary embolism [None]
  - Injury [None]
  - General physical health deterioration [None]
  - Pain [None]
  - Pain [None]
  - Anxiety [None]
  - Emotional distress [None]
  - Cholecystitis chronic [None]
